FAERS Safety Report 12336349 (Version 2)
Quarter: 2018Q3

REPORT INFORMATION
  Report Type: Spontaneous
  Country: US (occurrence: US)
  Receive Date: 20160505
  Receipt Date: 20180807
  Transmission Date: 20181010
  Serious: No
  Sender: FDA-Public Use
  Company Number: US-BAYER-2016-086818

PATIENT
  Age: 63 Year
  Sex: Female
  Weight: 79.36 kg

DRUGS (4)
  1. ACID REDUCER [Concomitant]
  2. MIRALAX [Suspect]
     Active Substance: POLYETHYLENE GLYCOL 3350
     Indication: CONSTIPATION
     Dosage: 1 DF, QD, DAILY
     Route: 048
  3. MIRALAX [Suspect]
     Active Substance: POLYETHYLENE GLYCOL 3350
     Indication: GASTROINTESTINAL DISORDER
     Dosage: 0.5 DF, QD
     Route: 048
     Dates: start: 2011
  4. POTASSIUM [Concomitant]
     Active Substance: POTASSIUM

REACTIONS (5)
  - Product prescribing issue [None]
  - Off label use [Unknown]
  - Product use issue [Unknown]
  - Product preparation error [None]
  - Product use in unapproved indication [None]

NARRATIVE: CASE EVENT DATE: 2011
